FAERS Safety Report 25412414 (Version 1)
Quarter: 2025Q2

REPORT INFORMATION
  Report Type: Spontaneous
  Country: BG (occurrence: BG)
  Receive Date: 20250609
  Receipt Date: 20250609
  Transmission Date: 20250717
  Serious: Yes (Hospitalization, Other)
  Sender: STRIDES
  Company Number: BG-STRIDES ARCOLAB LIMITED-2025SP007007

PATIENT
  Age: 74 Year
  Sex: Male

DRUGS (5)
  1. VERAPAMIL [Suspect]
     Active Substance: VERAPAMIL HYDROCHLORIDE
     Indication: Hypertension
     Route: 065
     Dates: start: 2005, end: 2019
  2. VALSARTAN [Suspect]
     Active Substance: VALSARTAN
     Indication: Hypertension
     Route: 065
     Dates: start: 2019
  3. LERCANIDIPINE [Suspect]
     Active Substance: LERCANIDIPINE
     Indication: Hypertension
     Route: 065
     Dates: start: 2019
  4. ENALAPRIL [Suspect]
     Active Substance: ENALAPRIL
     Indication: Hypertension
     Route: 065
     Dates: start: 2005, end: 2019
  5. ROSUVASTATIN [Concomitant]
     Active Substance: ROSUVASTATIN
     Indication: Product used for unknown indication
     Route: 065

REACTIONS (2)
  - Nodular melanoma [Recovered/Resolved]
  - Product contamination chemical [Unknown]
